FAERS Safety Report 7430434-2 (Version None)
Quarter: 2011Q2

REPORT INFORMATION
  Report Type: 
  Country: None (occurrence: None)
  Receive Date: 20110421
  Receipt Date: 20110418
  Transmission Date: 20111010
  Serious: Yes (Hospitalization)
  Sender: FDA-Public Use
  Company Number: CHPA2011US05627

PATIENT
  Age: 60 Year
  Sex: Female
  Weight: 97.052 kg

DRUGS (18)
  1. PREDNISONE [Concomitant]
     Dosage: 10 MG, QD
  2. ALBUTEROL [Concomitant]
     Dosage: 1 DF, Q6H
  3. ALLEGRA [Concomitant]
     Dosage: 1 DF, QD
  4. PROZAC [Concomitant]
     Dosage: 20 MG, BID
  5. NEURONTIN [Concomitant]
     Dosage: 600 MG, TID
  6. ZESTRIL [Concomitant]
     Dosage: 25 MG, TID
  7. NEXIUM [Concomitant]
     Dosage: 40 MG, BID
  8. HABITROL [Suspect]
     Indication: SMOKING CESSATION THERAPY
     Dosage: 21 MG, QD
     Route: 062
     Dates: start: 20110407, end: 20110418
  9. ROXICODONE [Concomitant]
     Dosage: 5 MG, QD
  10. ADVAIR HFA [Concomitant]
     Dosage: UNK, BID, INHALER
  11. SINGULAIR [Concomitant]
     Dosage: 2 MG TABLETS ONCE A DAY
     Route: 048
  12. MAXALT [Concomitant]
     Dosage: 10 MG, PRN
  13. OXYCODONE HCL [Concomitant]
     Dosage: 15 MG, TID
     Route: 048
  14. SPIRIVA [Concomitant]
  15. CRESTOR [Concomitant]
     Dosage: 10 MG, QD
  16. DIOVAN [Concomitant]
     Dosage: 12.5 MG, BID
  17. OXYGEN THERAPY [Concomitant]
     Dosage: 3 L, UNK
  18. DRUG THERAPY NOS [Concomitant]
     Dosage: 20 MG A DAY

REACTIONS (1)
  - CONVULSION [None]
